FAERS Safety Report 4948968-9 (Version None)
Quarter: 2006Q1

REPORT INFORMATION
  Report Type: 
  Country: None (occurrence: None)
  Receive Date: 20060315
  Receipt Date: 20060221
  Transmission Date: 20060701
  Serious: Yes (Hospitalization, Other)
  Sender: FDA-Public Use
  Company Number: USA0510109688

PATIENT
  Age: 46 Year
  Sex: Female
  Weight: 45.8 kg

DRUGS (11)
  1. FORTEO [Suspect]
     Indication: OSTEOPOROSIS
     Dosage: SUBCUTANEOUS
     Route: 058
     Dates: start: 20040901
  2. FORTEO [Concomitant]
  3. NEURONTIN [Concomitant]
  4. MAXZIDE [Concomitant]
  5. PREVACID [Concomitant]
  6. POTASSIUM (POTASSIUM) [Concomitant]
  7. LIPITOR [Concomitant]
  8. ALPHAGAN [Concomitant]
  9. ESTRATEST [Concomitant]
  10. FIORINAL [Concomitant]
  11. ATIVAN [Concomitant]

REACTIONS (13)
  - ANOREXIA [None]
  - ASTHENIA [None]
  - BLOOD POTASSIUM DECREASED [None]
  - BRONCHITIS [None]
  - CONDITION AGGRAVATED [None]
  - DEHYDRATION [None]
  - DEPRESSION [None]
  - FALL [None]
  - FATIGUE [None]
  - FIBROMYALGIA [None]
  - GLAUCOMA [None]
  - PAIN [None]
  - PNEUMONIA [None]
